FAERS Safety Report 9295649 (Version 1)
Quarter: 2013Q1

REPORT INFORMATION
  Report Type: Spontaneous
  Country: US (occurrence: None)
  Receive Date: 20121227
  Receipt Date: 20121227
  Transmission Date: 20140127
  Serious: Yes (Other)
  Sender: FDA-Public Use
  Company Number: PHEH2012US007038

PATIENT
  Age: 16 Year
  Sex: Male
  Weight: 93.5 kg

DRUGS (5)
  1. EXJADE (*CGP 72670*) DISPERSIBLE TABLET [Suspect]
     Indication: SICKLE CELL ANAEMIA
     Route: 048
     Dates: end: 201201
  2. FOLIC ACID (FOLIC ACID) [Concomitant]
  3. LORTAB (HYDROCODONE BITARTRATE, PARACETAMOL) [Concomitant]
  4. ADVAIR (FLUTICASONE PROPRIONATE, SALMETEROL XINAFOATE) [Concomitant]
  5. PRO-AVIR (PROCATEROL HYDROCHLORIDE) [Concomitant]

REACTIONS (4)
  - Liver disorder [None]
  - Alanine aminotransferase increased [None]
  - Aspartate aminotransferase increased [None]
  - Blood bilirubin increased [None]
